FAERS Safety Report 7544793-3 (Version None)
Quarter: 2011Q2

REPORT INFORMATION
  Report Type: 
  Country: None (occurrence: None)
  Receive Date: 20110614
  Receipt Date: 20110601
  Transmission Date: 20111010
  Serious: Yes (Hospitalization)
  Sender: FDA-Public Use
  Company Number: US-BAYER-2011-048327

PATIENT
  Sex: Female

DRUGS (1)
  1. AVELOX [Suspect]
     Dosage: DAILY DOSE 400 MG
     Route: 048
     Dates: start: 20110531, end: 20110601

REACTIONS (1)
  - PARAESTHESIA [None]
